FAERS Safety Report 15562315 (Version 1)
Quarter: 2018Q4

REPORT INFORMATION
  Report Type: Spontaneous
  Country: GR (occurrence: GR)
  Receive Date: 20181029
  Receipt Date: 20181029
  Transmission Date: 20190205
  Serious: Yes (Hospitalization)
  Sender: FDA-Public Use
  Company Number: GR-NOVOPROD-629065

PATIENT
  Age: 72 Year
  Sex: Female
  Weight: 90 kg

DRUGS (9)
  1. TRESIBA [Suspect]
     Active Substance: INSULIN DEGLUDEC
     Indication: TYPE 2 DIABETES MELLITUS
     Dosage: 25 U, QD (EVERY EVENING AT 10 P.M)
     Route: 058
  2. DAFLON                             /00426001/ [Concomitant]
     Active Substance: DIOSMIN
     Indication: PERIPHERAL VASCULAR DISORDER
     Dosage: 1 TAB, QD (EVERY MORNING)
     Route: 048
  3. COAPROVEL [Concomitant]
     Active Substance: HYDROCHLOROTHIAZIDE\IRBESARTAN
     Indication: HYPERTENSION
     Dosage: 1 TAB, QD (EVERY MORNING)
     Route: 048
  4. LONARID-N [Concomitant]
     Dosage: 1 TAB, QD (EVERY EVENING)
     Route: 048
  5. APIDRA [Concomitant]
     Active Substance: INSULIN GLULISINE
     Indication: TYPE 2 DIABETES MELLITUS
     Dosage: AS NEEDED (PRN)
     Route: 065
  6. LOBIVON [Concomitant]
     Active Substance: NEBIVOLOL HYDROCHLORIDE
     Indication: HYPERTENSION
     Dosage: 2.5 MG, QD (EVERY MORNING)
     Route: 048
  7. SALOSPIR [Concomitant]
     Active Substance: ASPIRIN
     Dosage: 100 MG, QD (EVERY MORNING)
     Route: 048
  8. LEXOTANIL [Concomitant]
     Active Substance: BROMAZEPAM
     Indication: INSOMNIA
     Dosage: 0.5 TAB, QD (EVERY NIGHT)
     Route: 048
  9. MESULID [Concomitant]
     Active Substance: NIMESULIDE
     Dosage: 100 MG, BIW (WEDNESDAY AND SATURDAY)
     Route: 048

REACTIONS (5)
  - Nocturia [Not Recovered/Not Resolved]
  - Diverticulum [Recovered/Resolved]
  - Blood urine present [Unknown]
  - Cerebrovascular accident [Unknown]
  - Erysipelas [Unknown]

NARRATIVE: CASE EVENT DATE: 201711
